FAERS Safety Report 17749736 (Version 4)
Quarter: 2020Q3

REPORT INFORMATION
  Report Type: Report from Study
  Country: US (occurrence: US)
  Receive Date: 20200506
  Receipt Date: 20200720
  Transmission Date: 20201102
  Serious: No
  Sender: FDA-Public Use
  Company Number: NVSC2020US121467

PATIENT
  Age: 37 Year
  Sex: Female

DRUGS (1)
  1. GLATOPA [Suspect]
     Active Substance: GLATIRAMER ACETATE
     Indication: MULTIPLE SCLEROSIS
     Dosage: 40 MG, Q3W
     Route: 058

REACTIONS (7)
  - Diarrhoea [Unknown]
  - Sensitive skin [Unknown]
  - Swelling [Unknown]
  - Burning sensation [Unknown]
  - Illness [Unknown]
  - Injection site bruising [Unknown]
  - Pruritus [Unknown]

NARRATIVE: CASE EVENT DATE: 20200301
